FAERS Safety Report 16170191 (Version 1)
Quarter: 2019Q2

REPORT INFORMATION
  Report Type: Report from Study
  Country: GB (occurrence: GB)
  Receive Date: 20190408
  Receipt Date: 20190408
  Transmission Date: 20190711
  Serious: Yes (Other)
  Sender: FDA-Public Use
  Company Number: PHHY2019GB079882

PATIENT
  Sex: Male

DRUGS (1)
  1. ERELZI [Suspect]
     Active Substance: ETANERCEPT-SZZS
     Indication: RHEUMATOID ARTHRITIS
     Dosage: 50 MG, QW,PREFILLED PEN
     Route: 058
     Dates: start: 20180502

REACTIONS (4)
  - Malaise [Unknown]
  - Rhinitis [Unknown]
  - Lymphadenitis [Unknown]
  - Pharyngitis [Unknown]
